FAERS Safety Report 16647795 (Version 1)
Quarter: 2019Q3

REPORT INFORMATION
  Report Type: Spontaneous
  Country: US (occurrence: US)
  Receive Date: 20190729
  Receipt Date: 20190729
  Transmission Date: 20191004
  Serious: Yes (Life-Threatening, Hospitalization)
  Sender: FDA-Public Use
  Company Number: None

PATIENT
  Age: 63 Year
  Sex: Female
  Weight: 55.8 kg

DRUGS (5)
  1. RIFAXIMIN. [Concomitant]
     Active Substance: RIFAXIMIN
     Dates: start: 20190404, end: 20190408
  2. LACTULOSE. [Concomitant]
     Active Substance: LACTULOSE
     Dates: start: 20190325, end: 20190330
  3. ACETYLCYSTEINE. [Concomitant]
     Active Substance: ACETYLCYSTEINE
     Dates: start: 20190404, end: 20190408
  4. SULFAMETHOXAZOLE/TRIMETHOPRIM [Suspect]
     Active Substance: SULFAMETHOXAZOLE\TRIMETHOPRIM
     Route: 048
     Dates: start: 20190228, end: 20190309
  5. PHYTONADIONE. [Concomitant]
     Active Substance: PHYTONADIONE

REACTIONS (12)
  - Acute hepatic failure [None]
  - Drug intolerance [None]
  - Pneumonia aspiration [None]
  - Delirium [None]
  - Rash [None]
  - Disorientation [None]
  - Confusional state [None]
  - Hypotension [None]
  - Unresponsive to stimuli [None]
  - Hypersensitivity [None]
  - Agitation [None]
  - Retroperitoneal haemorrhage [None]

NARRATIVE: CASE EVENT DATE: 20190403
